FAERS Safety Report 12545406 (Version 1)
Quarter: 2016Q3

REPORT INFORMATION
  Report Type: Report from Study
  Country: IT (occurrence: IT)
  Receive Date: 20160711
  Receipt Date: 20160711
  Transmission Date: 20161109
  Serious: Yes (Congenital Anomaly)
  Sender: FDA-Public Use
  Company Number: IT-PFIZER INC-2016334184

PATIENT
  Sex: Male
  Weight: 3.9 kg

DRUGS (4)
  1. GABAPENTIN. [Suspect]
     Active Substance: GABAPENTIN
     Dosage: 600 MG, DAILY
     Route: 064
  2. PIOGLITAZONE. [Concomitant]
     Active Substance: PIOGLITAZONE
  3. NEBIVOLOL. [Concomitant]
     Active Substance: NEBIVOLOL
  4. ISOSORBIDE DINITRATE. [Concomitant]
     Active Substance: ISOSORBIDE DINITRATE
     Dosage: UNK

REACTIONS (2)
  - Fallot^s tetralogy [Unknown]
  - Maternal exposure during pregnancy [Unknown]
